FAERS Safety Report 8777537 (Version 2)
Quarter: 2012Q4

REPORT INFORMATION
  Report Type: 
  Country: US (occurrence: US)
  Receive Date: 20120912
  Receipt Date: 20121019
  Transmission Date: 20130627
  Serious: No
  Sender: FDA-Public Use
  Company Number: US-ASTRAZENECA-2012SE60962

PATIENT
  Age: 54 Year
  Sex: Male
  Weight: 110.2 kg

DRUGS (3)
  1. SYMBICORT PMDI [Suspect]
     Indication: ASTHMA
     Dosage: 80/4.5 MCG ONE PUFF DAILY
     Route: 055
     Dates: start: 2011
  2. SYMBICORT PMDI [Suspect]
     Indication: ASTHMA
     Dosage: 80/4.5 MCG ONE PUFF AS NEEDED
     Route: 055
     Dates: start: 2011
  3. LEVOTHYROXINE [Concomitant]

REACTIONS (2)
  - Wheezing [Unknown]
  - Off label use [Unknown]
